FAERS Safety Report 8286539-X (Version None)
Quarter: 2012Q2

REPORT INFORMATION
  Report Type: 
  Country: None (occurrence: None)
  Receive Date: 20120416
  Receipt Date: 20120402
  Transmission Date: 20120825
  Serious: Yes (Death, Other)
  Sender: FDA-Public Use
  Company Number: FR-PFIZER INC-2012091426

PATIENT
  Age: 88 Year
  Sex: Male

DRUGS (27)
  1. CORDARONE [Concomitant]
     Dosage: 200 MG, DAILY
     Route: 048
  2. CALCIDIA [Concomitant]
  3. ERGOCALCIFEROL [Concomitant]
  4. ALUDROX TABLETS [Concomitant]
  5. ATARAX [Suspect]
     Dosage: 25 MG, UNK
     Route: 048
     Dates: start: 20101125, end: 20100101
  6. HYPERIUM [Concomitant]
     Dosage: 1 MG, 2X/DAY
     Route: 048
  7. NOVORAPID [Concomitant]
  8. FLUCONAZOLE [Suspect]
     Dosage: 25 MG, DAILY
     Route: 048
     Dates: start: 20101112, end: 20101125
  9. AMOXICILLIN TRIHYDRATE [Suspect]
     Dosage: 500 MG, 2X/DAY
     Route: 048
     Dates: start: 20101124, end: 20100101
  10. NEXIUM [Concomitant]
     Dosage: 20 MG, DAILY
     Route: 048
  11. KAYEXALATE [Concomitant]
  12. XYZAL [Concomitant]
     Dosage: 5 MG, DAILY
     Route: 048
  13. ARANESP [Suspect]
     Dosage: 40 I?G 1X/WEEK
     Route: 058
     Dates: start: 20101110, end: 20100101
  14. PREVISCAN [Concomitant]
     Dosage: 20 MG, DAILY
     Route: 048
  15. GAVISCON [Concomitant]
  16. DIPROSONE [Concomitant]
  17. AMLODIPINE BESYLATE [Suspect]
     Dosage: 10 MG, DAILY
     Route: 048
     Dates: start: 20101112, end: 20100101
  18. VITAMIN B COMPLEX CAP [Concomitant]
  19. ASPEGIC 1000 [Suspect]
     Dosage: 1000 MG, UNK
     Route: 048
     Dates: start: 20101120, end: 20101125
  20. ALISKIREN [Suspect]
     Dosage: 300 MG, DAILY
     Route: 048
     Dates: start: 20101112, end: 20101127
  21. COZAAR [Concomitant]
     Dosage: 25 MG, DAILY
     Route: 048
  22. FORADIL [Concomitant]
     Dosage: 12 UG, UNK
  23. PREVISCAN [Concomitant]
     Dosage: 20 MG, DAILY
     Route: 048
  24. LASIX [Concomitant]
     Dosage: 40 MG, 2X/DAY
     Route: 048
  25. SPIRIVA [Concomitant]
     Dosage: 18 UG, UNK
  26. NEBIVOLOL [Concomitant]
     Dosage: 5 MG, UNK
     Route: 048
  27. NOVOMIX [Concomitant]

REACTIONS (2)
  - DEATH [None]
  - DERMATITIS BULLOUS [None]
